FAERS Safety Report 12987078 (Version 1)
Quarter: 2016Q4

REPORT INFORMATION
  Report Type: Report from Study
  Country: US (occurrence: US)
  Receive Date: 20161130
  Receipt Date: 20161130
  Transmission Date: 20170207
  Serious: Yes (Hospitalization)
  Sender: FDA-Public Use
  Company Number: US-JNJFOC-20160903458

PATIENT
  Sex: Male

DRUGS (3)
  1. DOXYCYCLINE. [Concomitant]
     Active Substance: DOXYCYCLINE
  2. IMBRUVICA [Suspect]
     Active Substance: IBRUTINIB
     Indication: CHRONIC LYMPHOCYTIC LEUKAEMIA
     Route: 048
     Dates: start: 20160726, end: 2016
  3. IMBRUVICA [Suspect]
     Active Substance: IBRUTINIB
     Indication: CHRONIC LYMPHOCYTIC LEUKAEMIA
     Route: 048
     Dates: start: 2016, end: 2016

REACTIONS (14)
  - Jaundice [Unknown]
  - Somnolence [Unknown]
  - Neck pain [Unknown]
  - Fatigue [Unknown]
  - Decreased appetite [Unknown]
  - Diarrhoea [Unknown]
  - Joint swelling [Recovering/Resolving]
  - Lower respiratory tract infection [Unknown]
  - Infection [Unknown]
  - Skin discolouration [Unknown]
  - Arthralgia [Unknown]
  - Haemorrhagic diathesis [Unknown]
  - Malaise [Unknown]
  - Peripheral swelling [Recovering/Resolving]
